FAERS Safety Report 9336321 (Version 1)
Quarter: 2013Q2

REPORT INFORMATION
  Report Type: Spontaneous
  Country: CH (occurrence: CH)
  Receive Date: 20130607
  Receipt Date: 20130607
  Transmission Date: 20140414
  Serious: Yes (Death)
  Sender: FDA-Public Use
  Company Number: CH-JNJFOC-20130601136

PATIENT
  Age: 88 Year
  Sex: Female

DRUGS (3)
  1. XARELTO [Suspect]
     Indication: PRODUCT USED FOR UNKNOWN INDICATION
     Route: 048
     Dates: start: 201302, end: 20130328
  2. SEROQUEL [Concomitant]
     Route: 048
     Dates: end: 20130328
  3. ELTROXIN [Concomitant]
     Route: 048
     Dates: end: 20130328

REACTIONS (2)
  - Cerebral haemorrhage [Fatal]
  - Altered state of consciousness [Fatal]
